FAERS Safety Report 13008192 (Version 1)
Quarter: 2016Q4

REPORT INFORMATION
  Report Type: Spontaneous
  Country: GB (occurrence: GB)
  Receive Date: 20161208
  Receipt Date: 20161208
  Transmission Date: 20170207
  Serious: Yes (Hospitalization)
  Sender: FDA-Public Use
  Company Number: GB-ACCORD-046118

PATIENT
  Age: 84 Year
  Sex: Male

DRUGS (9)
  1. FUROSEMIDE. [Concomitant]
     Active Substance: FUROSEMIDE
  2. SIMVASTATIN. [Concomitant]
     Active Substance: SIMVASTATIN
  3. MEMANTINE/MEMANTINE HYDROCHLORIDE [Concomitant]
  4. BISOPROLOL [Concomitant]
     Active Substance: BISOPROLOL
  5. SPIRONOLACTONE. [Suspect]
     Active Substance: SPIRONOLACTONE
     Indication: PRODUCT USED FOR UNKNOWN INDICATION
     Dosage: DOSE: 50 MG ONCE DAILY
     Route: 048
  6. ACETYLSALICYLIC ACID [Concomitant]
     Active Substance: ASPIRIN
  7. MIRTAZAPINE. [Concomitant]
     Active Substance: MIRTAZAPINE
  8. TAMSULOSIN/TAMSULOSIN HYDROCHLORIDE [Concomitant]
  9. NIFEDIPINE. [Concomitant]
     Active Substance: NIFEDIPINE

REACTIONS (1)
  - Kidney infection [Recovering/Resolving]
